FAERS Safety Report 17459285 (Version 3)
Quarter: 2020Q2

REPORT INFORMATION
  Report Type: Not Available
  Country: US (occurrence: US)
  Receive Date: 20200225
  Receipt Date: 20200416
  Transmission Date: 20200713
  Serious: Yes (Hospitalization)
  Sender: FDA-Public Use
  Company Number: US-NEUROCRINE BIOSCIENCES INC.-2020NBI00546

PATIENT
  Sex: Female

DRUGS (18)
  1. PEPSIN [Concomitant]
     Active Substance: PEPSIN
     Indication: DYSPEPSIA
  2. TRAZODONE [Concomitant]
     Active Substance: TRAZODONE HYDROCHLORIDE
  3. NALTREXONE [Concomitant]
     Active Substance: NALTREXONE
  4. OMEPRAZOLE. [Concomitant]
     Active Substance: OMEPRAZOLE
  5. BENZTROPINE MESYLATE. [Concomitant]
     Active Substance: BENZTROPINE MESYLATE
  6. CLONIDINE. [Concomitant]
     Active Substance: CLONIDINE
     Dosage: 0.1 (NO UNITS PROVIDED)
  7. ELAVIL [Concomitant]
     Active Substance: AMITRIPTYLINE HYDROCHLORIDE
  8. DESVENLAFAXINE ER [Concomitant]
     Active Substance: DESVENLAFAXINE
  9. CLOZAPINE. [Concomitant]
     Active Substance: CLOZAPINE
  10. INGREZZA [Suspect]
     Active Substance: VALBENAZINE
     Indication: TARDIVE DYSKINESIA
     Route: 048
     Dates: start: 20200114
  11. CLARITIN [Concomitant]
     Active Substance: LORATADINE
     Indication: HYPERSENSITIVITY
  12. BUSPIRONE [Concomitant]
     Active Substance: BUSPIRONE HYDROCHLORIDE
  13. IRON [Concomitant]
     Active Substance: IRON
  14. MELATONIN [Concomitant]
     Active Substance: MELATONIN
     Dosage: AT NIGHT
  15. LITHIUM CR [Concomitant]
     Active Substance: LITHIUM CARBONATE
  16. CLOZAPINE. [Concomitant]
     Active Substance: CLOZAPINE
  17. RISPERIDONE. [Concomitant]
     Active Substance: RISPERIDONE
  18. ZYPREXA [Concomitant]
     Active Substance: OLANZAPINE

REACTIONS (5)
  - Suicidal ideation [Unknown]
  - Hallucination, auditory [Unknown]
  - Intentional self-injury [Unknown]
  - Sedation [Not Recovered/Not Resolved]
  - Drooling [Not Recovered/Not Resolved]

NARRATIVE: CASE EVENT DATE: 2020
